FAERS Safety Report 8163932-7 (Version None)
Quarter: 2012Q1

REPORT INFORMATION
  Report Type: 
  Country: None (occurrence: None)
  Receive Date: 20120224
  Receipt Date: 20120216
  Transmission Date: 20120608
  Serious: Yes (Other)
  Sender: FDA-Public Use
  Company Number: JP-JNJFOC-20111104383

PATIENT
  Age: 68 Year
  Sex: Male

DRUGS (2)
  1. INVEGA [Suspect]
     Indication: DEPRESSION
     Route: 048
     Dates: start: 20110401, end: 20110601
  2. RISPERDAL [Suspect]
     Indication: SCHIZOPHRENIA
     Route: 048

REACTIONS (9)
  - DRUG PRESCRIBING ERROR [None]
  - BENIGN PROSTATIC HYPERPLASIA [None]
  - MALAISE [None]
  - LIBIDO DECREASED [None]
  - OFF LABEL USE [None]
  - DEPRESSION [None]
  - ASTHENIA [None]
  - EJACULATION DISORDER [None]
  - CATARACT [None]
